FAERS Safety Report 9467368 (Version 1)
Quarter: 2013Q3

REPORT INFORMATION
  Report Type: Spontaneous
  Country: US (occurrence: US)
  Receive Date: 20130821
  Receipt Date: 20130821
  Transmission Date: 20140515
  Serious: No
  Sender: FDA-Public Use
  Company Number: US-009507513-1308USA008594

PATIENT
  Sex: Male

DRUGS (3)
  1. VICTRELIS [Suspect]
     Dosage: 800 MG, TID
  2. REBETOL [Suspect]
     Dosage: UNKNOWN
     Route: 048
  3. PEGASYS [Suspect]
     Dosage: UNKNOWN

REACTIONS (2)
  - Stomatitis [Unknown]
  - Oral pain [Unknown]
